FAERS Safety Report 6707126-8 (Version None)
Quarter: 2010Q2

REPORT INFORMATION
  Report Type: 
  Country: None (occurrence: None)
  Receive Date: 20100503
  Receipt Date: 20100429
  Transmission Date: 20101027
  Serious: Yes (Other)
  Sender: FDA-Public Use
  Company Number: DE-BRISTOL-MYERS SQUIBB COMPANY-14999510

PATIENT
  Age: 57 Year
  Sex: Male
  Weight: 65 kg

DRUGS (9)
  1. BARACLUDE [Suspect]
     Indication: HEPATITIS B
     Dates: start: 20090801
  2. SANDIMMUNE [Concomitant]
     Route: 048
  3. CELLCEPT [Concomitant]
     Dosage: 1 DF=500 UNITS NOT SPECIFIED
     Route: 048
  4. PREDNISOLONE [Concomitant]
     Route: 048
  5. OMEPRAZOLE [Concomitant]
     Dosage: 1 DF=20 UNITS NOT SPECIFIED
     Route: 048
  6. TAMSULOSIN HCL [Concomitant]
     Dosage: 1 DF=1 UNITS NOT SPECIFIED
  7. DOCITON [Concomitant]
     Dosage: 1DF-40 UNITS NOT MENTIONED DOCITON 40
  8. ATACAND [Concomitant]
     Dosage: 1DF- 16 UNITS NOT MENTIONED
  9. TORSEMIDE [Concomitant]
     Dosage: 1DF-2.5 UNITS NOT MENTIONED

REACTIONS (1)
  - LACTIC ACIDOSIS [None]
